FAERS Safety Report 6789878-4 (Version None)
Quarter: 2010Q2

REPORT INFORMATION
  Report Type: 
  Country: None (occurrence: None)
  Receive Date: 20100624
  Receipt Date: 20100616
  Transmission Date: 20101027
  Serious: Yes (Other)
  Sender: FDA-Public Use
  Company Number: US-PFIZER INC-2010075247

PATIENT
  Age: 72 Year
  Sex: Female

DRUGS (1)
  1. DETROL [Suspect]
     Dosage: UNK

REACTIONS (1)
  - SWELLING [None]
